FAERS Safety Report 5921188-7 (Version None)
Quarter: 2008Q4

REPORT INFORMATION
  Report Type: 
  Country: None (occurrence: None)
  Receive Date: 20081016
  Receipt Date: 20080825
  Transmission Date: 20090506
  Serious: No
  Sender: FDA-Public Use
  Company Number: US-B.I. PHARMACEUTICALS,INC./RIDGEFIELD-2008-BP-14526BP

PATIENT
  Age: 60 Year
  Sex: Female

DRUGS (1)
  1. MIRAPEX [Suspect]
     Indication: RESTLESS LEGS SYNDROME
     Dosage: 0.375MG DAILY UP TO 2.25MG DAILY
     Dates: start: 20010517, end: 20070601

REACTIONS (2)
  - PAIN [None]
  - PATHOLOGICAL GAMBLING [None]
